FAERS Safety Report 12836063 (Version 1)
Quarter: 2016Q4

REPORT INFORMATION
  Report Type: Other
  Country: JP (occurrence: JP)
  Receive Date: 20161011
  Receipt Date: 20161011
  Transmission Date: 20170207
  Serious: Yes (Other)
  Sender: FDA-Public Use
  Company Number: JP-WARNER CHILCOTT, LLC-1058200

PATIENT
  Age: 71 Year
  Sex: Male

DRUGS (4)
  1. CALBLOCK [Concomitant]
     Active Substance: AZELNIDIPINE
  2. TANATRIL [Concomitant]
     Active Substance: IMIDAPRIL
  3. ALOSITOL [Concomitant]
     Active Substance: ALLOPURINOL
  4. ACTONEL [Suspect]
     Active Substance: RISEDRONATE SODIUM
     Indication: OSTEOPOROSIS
     Route: 048
     Dates: start: 20160803

REACTIONS (4)
  - Mobility decreased [Recovering/Resolving]
  - Malaise [Recovered/Resolved]
  - Muscular weakness [Recovering/Resolving]
  - Urinary incontinence [Recovered/Resolved]

NARRATIVE: CASE EVENT DATE: 20160803
